FAERS Safety Report 10071742 (Version 1)
Quarter: 2014Q2

REPORT INFORMATION
  Report Type: Spontaneous
  Country: US (occurrence: US)
  Receive Date: 20140411
  Receipt Date: 20140411
  Transmission Date: 20141212
  Serious: Yes (Other)
  Sender: FDA-Public Use
  Company Number: US-AMGEN-USASP2014025187

PATIENT
  Age: 77 Year
  Sex: Female
  Weight: 39 kg

DRUGS (9)
  1. ENBREL [Suspect]
     Indication: PRODUCT USED FOR UNKNOWN INDICATION
     Dosage: 50 MG, QWK
     Route: 058
  2. CLOPIDOGREL                        /01220704/ [Concomitant]
     Dosage: 300 MG, UNK
  3. METOPROLOL [Concomitant]
     Dosage: 50 MG, ER
  4. OMEPRAZOLE [Concomitant]
     Dosage: 20 MG, UNK
  5. ASPIRIN [Concomitant]
     Dosage: 81 MG, UNK
  6. LEVOTHYROXIN [Concomitant]
     Dosage: 25 MUG, UNK
  7. AMLODIPINE [Concomitant]
     Dosage: 2.5 MG, UNK
  8. CRESTOR [Concomitant]
     Dosage: 10 MG, UNK
  9. VITAMIN D                          /00107901/ [Concomitant]
     Dosage: 400 UNIT, UNK

REACTIONS (5)
  - Coronary artery occlusion [Unknown]
  - Spinal column stenosis [Unknown]
  - Contusion [Unknown]
  - Swelling [Unknown]
  - Pain [Unknown]
